FAERS Safety Report 10618923 (Version 2)
Quarter: 2015Q1

REPORT INFORMATION
  Report Type: Spontaneous
  Country: JP (occurrence: None)
  Receive Date: 20141126
  Receipt Date: 20150203
  Transmission Date: 20150720
  Serious: Yes (Death, Life-Threatening)
  Sender: FDA-Public Use
  Company Number: 201411000478

PATIENT
  Age: 1 Day
  Sex: Male
  Weight: .5 kg

DRUGS (14)
  1. NITRIC OXIDE. [Suspect]
     Active Substance: NITRIC OXIDE
     Indication: RESPIRATORY FAILURE
     Dosage: 5 PPM, CONTINUOUS, INHALATION
     Route: 055
  2. NITRIC OXIDE. [Suspect]
     Active Substance: NITRIC OXIDE
     Indication: PERSISTENT FOETAL CIRCULATION
     Dosage: 5 PPM, CONTINUOUS, INHALATION
     Route: 055
  3. KENKETU GLOVENIN-I [Concomitant]
     Active Substance: HUMAN IMMUNOGLOBULIN G
  4. CLAFORAN [Concomitant]
     Active Substance: CEFOTAXIME SODIUM
  5. DOBUTREX [Concomitant]
     Active Substance: DOBUTAMINE HYDROCHLORIDE
  6. FENTANYL. [Concomitant]
     Active Substance: FENTANYL
  7. PHENOBARBITAL. [Concomitant]
     Active Substance: PHENOBARBITAL
  8. INOVAN [Concomitant]
     Active Substance: DOPAMINE HYDROCHLORIDE
  9. SOLU-CORTEF [Concomitant]
     Active Substance: HYDROCORTISONE SODIUM SUCCINATE
  10. MEYLON [Concomitant]
     Active Substance: SODIUM BICARBONATE
  11. EPINEPHRINE. [Concomitant]
     Active Substance: EPINEPHRINE
  12. NITRIC OXIDE. [Suspect]
     Active Substance: NITRIC OXIDE
     Indication: PULMONARY HYPERTENSION
     Dosage: 5 PPM, CONTINUOUS, INHALATION
     Route: 055
  13. VICCILLIN [Concomitant]
     Active Substance: AMPICILLIN
  14. SURFACTANTE B RICHET [Concomitant]

REACTIONS (8)
  - Patent ductus arteriosus [None]
  - Pulmonary haemorrhage [None]
  - No therapeutic response [None]
  - Hyperkalaemia [None]
  - Intraventricular haemorrhage [None]
  - Condition aggravated [None]
  - Disseminated intravascular coagulation [None]
  - Cardiovascular disorder [None]

NARRATIVE: CASE EVENT DATE: 20140409
